FAERS Safety Report 8407240-5 (Version None)
Quarter: 2012Q2

REPORT INFORMATION
  Report Type: 
  Country: None (occurrence: None)
  Receive Date: 20120529
  Receipt Date: 20120514
  Transmission Date: 20120825
  Serious: Yes (Other)
  Sender: FDA-Public Use
  Company Number: 2012MA006216

PATIENT
  Age: 72 Year
  Sex: Female

DRUGS (23)
  1. NICORANDIL [Concomitant]
  2. AMLODIPINE [Concomitant]
  3. VALPROIC ACID [Concomitant]
  4. OMEPRAZOLE [Concomitant]
  5. TRAMADOL HCL [Concomitant]
  6. SIMVASTATIN [Concomitant]
  7. QUININE SULFATE [Concomitant]
  8. MOVIPREP [Concomitant]
  9. DOXYCYCLINE HYCLATE [Suspect]
     Indication: URINARY TRACT INFECTION
     Dosage: 100 MG; PO
     Route: 048
     Dates: start: 20120329, end: 20120330
  10. LACRI-LUBE [Concomitant]
  11. ISOSORBIDE MONONITRATE [Concomitant]
  12. SOLIFENACIN SUCCINATE [Concomitant]
  13. BUMETANIDE [Concomitant]
  14. ACETAMINOPHEN [Concomitant]
  15. PROCYCLIDINE HYDROCHLORIDE 2MG TAB [Concomitant]
  16. ZUCLOPENTHIXOL [Concomitant]
  17. MIRTAZAPINE [Concomitant]
  18. RAMIPRIL [Concomitant]
  19. LEVOTHYROXINE SODIUM [Concomitant]
  20. ATENOLOL [Concomitant]
  21. IBUPROFEN [Concomitant]
  22. TIOTROPIUM BROMIDE [Concomitant]
  23. INTRASITE [Concomitant]

REACTIONS (1)
  - SWELLING FACE [None]
